FAERS Safety Report 15190257 (Version 1)
Quarter: 2018Q3

REPORT INFORMATION
  Report Type: Spontaneous
  Country: US (occurrence: US)
  Receive Date: 20180724
  Receipt Date: 20180724
  Transmission Date: 20181010
  Serious: No
  Sender: FDA-Public Use
  Company Number: US-ASTRAZENECA-2018SE92313

PATIENT
  Age: 851 Month
  Sex: Female
  Weight: 90.7 kg

DRUGS (6)
  1. POTASSIUM [Concomitant]
     Active Substance: POTASSIUM
     Dosage: 40.0MEQ UNKNOWN
  2. MAGNESIUM [Concomitant]
     Active Substance: MAGNESIUM
     Indication: BLOOD MAGNESIUM DECREASED
  3. NEXIUM [Suspect]
     Active Substance: ESOMEPRAZOLE MAGNESIUM
     Indication: GASTROOESOPHAGEAL REFLUX DISEASE
     Dosage: 40.0MG UNKNOWN
     Route: 048
     Dates: start: 2004
  4. BUMETANIDE. [Concomitant]
     Active Substance: BUMETANIDE
     Indication: DIURETIC THERAPY
  5. CALCIUM [Concomitant]
     Active Substance: CALCIUM
     Dosage: 2000.0MG UNKNOWN
  6. NEXIUM [Suspect]
     Active Substance: ESOMEPRAZOLE MAGNESIUM
     Indication: GASTROOESOPHAGEAL REFLUX DISEASE
     Dosage: GENERIC ESOMEPRAZOLE MAGNESIUM UNKNOWN
     Route: 065
     Dates: start: 201802

REACTIONS (6)
  - Arrhythmia [Unknown]
  - Hypothalamo-pituitary disorder [Unknown]
  - Diarrhoea [Unknown]
  - Tetany [Unknown]
  - Paraesthesia [Unknown]
  - Blood magnesium decreased [Not Recovered/Not Resolved]

NARRATIVE: CASE EVENT DATE: 201802
